FAERS Safety Report 5630746-9 (Version None)
Quarter: 2008Q1

REPORT INFORMATION
  Report Type: 
  Country: None (occurrence: None)
  Receive Date: 20080213
  Receipt Date: 20080204
  Transmission Date: 20080703
  Serious: Yes (Death)
  Sender: FDA-Public Use
  Company Number: 2008-01048

PATIENT
  Age: 57 Year
  Sex: Male

DRUGS (3)
  1. VERAPAMIL                      (VERAPAMIL HYDROCHLORIDE) TABLET [Suspect]
  2. ETHYLENE GLYCOL [Suspect]
  3. ETHANOL           (ETHANOL) [Suspect]

REACTIONS (1)
  - DEATH [None]
